FAERS Safety Report 19700306 (Version 1)
Quarter: 2021Q3

REPORT INFORMATION
  Report Type: Spontaneous
  Country: GB (occurrence: GB)
  Receive Date: 20210813
  Receipt Date: 20210813
  Transmission Date: 20211014
  Serious: Yes (Hospitalization)
  Sender: FDA-Public Use
  Company Number: GB-MYLANLABS-2021M1050934

PATIENT
  Age: 28 Year
  Sex: Female

DRUGS (2)
  1. LEVOBUPIVACAINE [Suspect]
     Active Substance: LEVOBUPIVACAINE
     Indication: EPIDURAL ANALGESIA
     Dosage: 3 MILLILITER
     Route: 037
  2. FENTANYL. [Suspect]
     Active Substance: FENTANYL
     Indication: EPIDURAL ANALGESIA
     Dosage: 2MICROGRAM/ML
     Route: 037

REACTIONS (4)
  - Subdural haematoma [Recovered/Resolved]
  - Maternal exposure during pregnancy [Recovered/Resolved]
  - Incorrect route of product administration [Recovered/Resolved]
  - Generalised tonic-clonic seizure [Recovered/Resolved]
